FAERS Safety Report 7860961-5 (Version None)
Quarter: 2011Q4

REPORT INFORMATION
  Report Type: 
  Country: None (occurrence: None)
  Receive Date: 20111027
  Receipt Date: 20111012
  Transmission Date: 20120403
  Serious: Yes (Hospitalization)
  Sender: FDA-Public Use
  Company Number: US-BIOGENIDEC-2010BI009174

PATIENT
  Sex: Male
  Weight: 97 kg

DRUGS (4)
  1. TYSABRI [Suspect]
     Indication: MULTIPLE SCLEROSIS
     Route: 042
     Dates: start: 20061003, end: 20100112
  2. RISPERDAL [Concomitant]
     Indication: IMPULSIVE BEHAVIOUR
     Route: 048
  3. CELEXA [Concomitant]
     Indication: DEPRESSION
     Route: 050
  4. RISPERDAL [Concomitant]
     Indication: PARANOIA
     Route: 048

REACTIONS (7)
  - PULMONARY OEDEMA [None]
  - HIV TEST POSITIVE [None]
  - PROGRESSIVE MULTIFOCAL LEUKOENCEPHALOPATHY [None]
  - PNEUMONIA ASPIRATION [None]
  - CLOSTRIDIUM DIFFICILE COLITIS [None]
  - ALCOHOLISM [None]
  - IMMUNE RECONSTITUTION SYNDROME [None]
